FAERS Safety Report 6046042-4 (Version None)
Quarter: 2009Q1

REPORT INFORMATION
  Report Type: 
  Country: None (occurrence: None)
  Receive Date: 20090116
  Receipt Date: 20090110
  Transmission Date: 20090719
  Serious: Yes (Other)
  Sender: FDA-Public Use
  Company Number: 2008SP023693

PATIENT
  Age: 46 Year
  Sex: Female
  Weight: 38.5557 kg

DRUGS (3)
  1. PEG-INTRON [Suspect]
     Indication: HEPATITIS C
     Dosage: 64 MCG; QW; SC, 50 MCG; QW; SC
     Route: 058
     Dates: start: 20080721
  2. PEG-INTRON [Suspect]
     Indication: OFF LABEL USE
     Dosage: 64 MCG; QW; SC, 50 MCG; QW; SC
     Route: 058
     Dates: start: 20080721
  3. RIBAVIRIN [Suspect]
     Indication: HEPATITIS C
     Dosage: 1000 MG; QD; PO, 200 MG; BIW; PO
     Route: 048
     Dates: start: 20080721

REACTIONS (22)
  - ALOPECIA [None]
  - ANOREXIA [None]
  - ATRIAL FIBRILLATION [None]
  - CHILLS [None]
  - CONDITION AGGRAVATED [None]
  - DIARRHOEA [None]
  - DRY SKIN [None]
  - DYSPNOEA [None]
  - FATIGUE [None]
  - FLATULENCE [None]
  - GAIT DISTURBANCE [None]
  - GASTROINTESTINAL PAIN [None]
  - HYPOPHAGIA [None]
  - INFLUENZA LIKE ILLNESS [None]
  - INSOMNIA [None]
  - PAIN IN EXTREMITY [None]
  - PERFORATED ULCER [None]
  - PRURITUS [None]
  - PULMONARY HYPERTENSION [None]
  - PYREXIA [None]
  - THALASSAEMIA [None]
  - WEIGHT DECREASED [None]
